FAERS Safety Report 16565044 (Version 1)
Quarter: 2019Q3

REPORT INFORMATION
  Report Type: Spontaneous
  Country: ZA (occurrence: ZA)
  Receive Date: 20190712
  Receipt Date: 20190712
  Transmission Date: 20191004
  Serious: Yes (Disabling)
  Sender: FDA-Public Use
  Company Number: ZA-TEVA-2019-ZA-1074327

PATIENT
  Age: 63 Year
  Sex: Male

DRUGS (2)
  1. GLUCOPHAGE [Concomitant]
     Active Substance: METFORMIN HYDROCHLORIDE
     Dosage: OVER 1 YEAR, 1 IN THE MORNING
     Route: 048
  2. NEOTIGASON [Suspect]
     Active Substance: ACITRETIN
     Dosage: 25 MILLIGRAM DAILY;
     Route: 048
     Dates: start: 20190524, end: 20190607

REACTIONS (1)
  - Erectile dysfunction [Not Recovered/Not Resolved]

NARRATIVE: CASE EVENT DATE: 20190607
